FAERS Safety Report 9553175 (Version 1)
Quarter: 2013Q3

REPORT INFORMATION
  Report Type: Spontaneous
  Country: US (occurrence: None)
  Receive Date: 20130724
  Receipt Date: 20130724
  Transmission Date: 20140515
  Serious: Yes (Other)
  Sender: FDA-Public Use
  Company Number: PHEH2012US021962

PATIENT
  Age: 48 Year
  Sex: Female

DRUGS (2)
  1. RECLAST [Suspect]
     Indication: OSTEOPOROSIS
     Dosage: 5 MG ONCE YEARLY, INTRAVENOUS
     Route: 042
  2. STEROIDS NOS [Concomitant]

REACTIONS (1)
  - Atypical femur fracture [None]
